FAERS Safety Report 20439311 (Version 1)
Quarter: 2022Q1

REPORT INFORMATION
  Report Type: Spontaneous
  Country: TG (occurrence: TG)
  Receive Date: 20220207
  Receipt Date: 20220207
  Transmission Date: 20220423
  Serious: Yes (Death, Other)
  Sender: FDA-Public Use
  Company Number: TG-BRISTOL-MYERS SQUIBB COMPANY-BMS-2022-016851

PATIENT
  Age: 45 Year
  Sex: Male

DRUGS (1)
  1. SPRYCEL [Suspect]
     Active Substance: DASATINIB
     Indication: Chronic myeloid leukaemia
     Dosage: 100MG (2 X 50MG TABLETS)
     Route: 065

REACTIONS (1)
  - Death [Fatal]
